FAERS Safety Report 5742489-1 (Version None)
Quarter: 2008Q2

REPORT INFORMATION
  Report Type: 
  Country: None (occurrence: None)
  Receive Date: 20080519
  Receipt Date: 20080509
  Transmission Date: 20081010
  Serious: Yes (Other)
  Sender: FDA-Public Use
  Company Number: GB-AMGEN-UK278581

PATIENT
  Sex: Male
  Weight: 79.1 kg

DRUGS (2)
  1. PANITUMUMAB [Suspect]
     Indication: COLORECTAL CANCER
     Route: 042
     Dates: start: 20070822, end: 20080508
  2. IRINOTECAN HCL [Suspect]
     Route: 042
     Dates: start: 20070822, end: 20080508

REACTIONS (1)
  - INTERSTITIAL LUNG DISEASE [None]
